FAERS Safety Report 9735655 (Version 1)
Quarter: 2013Q4

REPORT INFORMATION
  Report Type: Spontaneous
  Country: US (occurrence: US)
  Receive Date: 20131206
  Receipt Date: 20131206
  Transmission Date: 20140711
  Serious: Yes (Death)
  Sender: FDA-Public Use
  Company Number: PHEH2013US025279

PATIENT
  Age: 84 Year
  Sex: Male

DRUGS (1)
  1. TOBI [Suspect]
     Dosage: 190 MG, BID
     Dates: start: 20110804, end: 20130705

REACTIONS (1)
  - Death [Fatal]
